FAERS Safety Report 6471357-5 (Version None)
Quarter: 2009Q4

REPORT INFORMATION
  Report Type: 
  Country: None (occurrence: None)
  Receive Date: 20091203
  Receipt Date: 20080527
  Transmission Date: 20100525
  Serious: Yes (Hospitalization)
  Sender: FDA-Public Use
  Company Number: US-ELI_LILLY_AND_COMPANY-US200802004897

PATIENT
  Sex: Male

DRUGS (14)
  1. BYETTA [Suspect]
     Indication: TYPE 2 DIABETES MELLITUS
     Dosage: 5 UG, 2/D
     Route: 058
     Dates: start: 20080110, end: 20080201
  2. BYETTA [Suspect]
     Dosage: 10 UG, 2/D
     Route: 058
     Dates: start: 20080201, end: 20080101
  3. BYETTA [Suspect]
     Dosage: 10 UG, 2/D
     Route: 058
     Dates: start: 20080201, end: 20080101
  4. BYETTA [Suspect]
     Dosage: 10 UG, DAILY (1/D)
     Route: 058
     Dates: start: 20080101
  5. METFORMIN HCL [Concomitant]
     Indication: DIABETES MELLITUS
     Dosage: 1000 MG, 2/D
     Route: 048
  6. GLIPIZIDE [Concomitant]
     Indication: DIABETES MELLITUS
     Dosage: 10 MG, DAILY (1/D)
     Route: 048
  7. AMITRIPTYLINE [Concomitant]
     Indication: MIGRAINE
     Dosage: 50 MG, DAILY (1/D)
     Route: 048
  8. PROPRANOLOL HYDROCHLORIDE [Concomitant]
     Indication: MIGRAINE
     Dosage: UNK, 2/D
  9. MICARDIS HCT [Concomitant]
     Indication: HYPERTENSION
     Dosage: UNK, DAILY (1/D)
  10. ZOCOR [Concomitant]
     Indication: HYPERLIPIDAEMIA
     Dosage: 20 MG, EACH EVENING
  11. MAXALT [Concomitant]
     Indication: MIGRAINE
     Dosage: 10 MG, 2/D
  12. ASPIRIN [Concomitant]
     Dosage: 325 MG, DAILY (1/D)
  13. ZANAFLEX [Concomitant]
     Dosage: UNK, 4/D
  14. EXCEDRIN (MIGRAINE) [Concomitant]
     Indication: HEADACHE
     Dosage: UNK, DAILY (1/D)

REACTIONS (9)
  - ACCELERATED HYPERTENSION [None]
  - BLOOD CALCIUM DECREASED [None]
  - BLOOD CREATININE INCREASED [None]
  - BLOOD GLUCOSE INCREASED [None]
  - BLOOD POTASSIUM DECREASED [None]
  - BLOOD SODIUM DECREASED [None]
  - BLOOD UREA INCREASED [None]
  - HEADACHE [None]
  - MIGRAINE [None]
